FAERS Safety Report 11275145 (Version 1)
Quarter: 2015Q3

REPORT INFORMATION
  Report Type: Spontaneous
  Country: CH (occurrence: CH)
  Receive Date: 20150716
  Receipt Date: 20150716
  Transmission Date: 20151125
  Serious: Yes (Other)
  Sender: FDA-Public Use
  Company Number: CH-009507513-1406CHE010690

PATIENT
  Age: 32 Year
  Sex: Female

DRUGS (7)
  1. XYZAL [Concomitant]
     Active Substance: LEVOCETIRIZINE DIHYDROCHLORIDE
     Dosage: 3 TABLETS IN TOTAL
     Route: 048
     Dates: start: 201311, end: 201312
  2. IRFEN [Suspect]
     Active Substance: IBUPROFEN
     Dosage: 600 MG, BID
     Route: 048
     Dates: start: 20131215, end: 20131220
  3. PULMICORT TURBUHALER [Concomitant]
     Active Substance: BUDESONIDE
     Dosage: UNK, BID
     Route: 045
     Dates: start: 20131129, end: 20131203
  4. ELOCOM [Suspect]
     Active Substance: MOMETASONE FUROATE
     Dosage: STRENGTH: 1MG/G; 1 APPLICATION PER DAY
     Route: 061
     Dates: start: 20131220, end: 20131230
  5. IBUPROFEN. [Suspect]
     Active Substance: IBUPROFEN
     Dosage: 3 LOCAL APPLICATIONS IN TOTAL
     Route: 061
     Dates: start: 20131215, end: 20131220
  6. DAFALGAN [Concomitant]
     Active Substance: ACETAMINOPHEN
     Dosage: 500 MG, BID
     Route: 048
     Dates: start: 20140103, end: 20140104
  7. MYDOCALM (TOLPERISONE HYDROCHLORIDE) [Concomitant]
     Dosage: 150 MG, ONCE DAILY
     Route: 048

REACTIONS (3)
  - Abortion induced [Recovered/Resolved]
  - Exposure during pregnancy [Unknown]
  - Foetal death [Recovered/Resolved]

NARRATIVE: CASE EVENT DATE: 20131215
